FAERS Safety Report 10699970 (Version 1)
Quarter: 2014Q4

REPORT INFORMATION
  Report Type: Spontaneous
  Country: US (occurrence: US)
  Receive Date: 20141022
  Receipt Date: 20141022
  Transmission Date: 20150529
  Serious: Yes (Hospitalization)
  Sender: FDA-Public Use
  Company Number: US-APOTEX-2014AP005246

PATIENT
  Age: 3 Month
  Sex: Male

DRUGS (3)
  1. DULOXETINE HYDROCHLORIDE DELAYED-RELEASE CAPSULES [Suspect]
     Active Substance: DULOXETINE HYDROCHLORIDE
     Indication: PRODUCT USED FOR UNKNOWN INDICATION
     Dosage: UNK
     Route: 063
  2. COMBIGAN [Concomitant]
     Active Substance: BRIMONIDINE TARTRATE\TIMOLOL MALEATE
     Indication: HAEMANGIOMA
     Dosage: BRIMONIDINE 0.2%/TIMOLOL 0.5% OPHTHALMIC SOLUTION; ONE DROP MASSAGED IN TWICE DAILY
     Route: 061
  3. COMBIGAN [Concomitant]
     Active Substance: BRIMONIDINE TARTRATE\TIMOLOL MALEATE
     Indication: OFF LABEL USE

REACTIONS (7)
  - Exposure during breast feeding [Recovered/Resolved]
  - Pallor [Recovered/Resolved]
  - Hypothermia [Recovered/Resolved]
  - Unresponsive to stimuli [Recovered/Resolved]
  - Lethargy [Recovered/Resolved]
  - Product use issue [Recovered/Resolved]
  - Hypotonia [Recovered/Resolved]
